FAERS Safety Report 12195093 (Version 1)
Quarter: 2016Q1

REPORT INFORMATION
  Report Type: Spontaneous
  Country: None (occurrence: US)
  Receive Date: 20160321
  Receipt Date: 20160321
  Transmission Date: 20160526
  Serious: No
  Sender: FDA-Public Use
  Company Number: US-TEVA-631831USA

PATIENT
  Age: 74 Year
  Sex: Female
  Weight: 59.02 kg

DRUGS (1)
  1. ESCITALOPRAM [Suspect]
     Active Substance: ESCITALOPRAM OXALATE
     Indication: ANXIETY
     Dates: start: 20160128

REACTIONS (4)
  - Wrong technique in product usage process [Unknown]
  - Vulvovaginal dryness [Unknown]
  - Intentional product use issue [Unknown]
  - Bladder pain [Unknown]

NARRATIVE: CASE EVENT DATE: 20160128
